FAERS Safety Report 8839468 (Version 1)
Quarter: 2012Q4

REPORT INFORMATION
  Report Type: Spontaneous
  Country: US (occurrence: None)
  Receive Date: 20121012
  Receipt Date: 20121012
  Transmission Date: 20130627
  Serious: Yes (Hospitalization)
  Sender: FDA-Public Use
  Company Number: None

PATIENT
  Age: 50 Year
  Sex: Female
  Weight: 87.09 kg

DRUGS (2)
  1. METHOTREXATE [Suspect]
     Indication: PSORIATIC ARTHRITIS
     Dosage: 5 WEEKS AT 5 TABS
1  WEEK AT 3 TABS
     Route: 048
     Dates: start: 20120816, end: 20120922
  2. METHOTREXATE [Suspect]
     Indication: PSORIASIS
     Dosage: 5 WEEKS AT 5 TABS
1  WEEK AT 3 TABS
     Route: 048
     Dates: start: 20120816, end: 20120922

REACTIONS (3)
  - Feeling cold [None]
  - Herpes zoster [None]
  - Varicella [None]
